FAERS Safety Report 11221648 (Version 2)
Quarter: 2015Q3

REPORT INFORMATION
  Report Type: Report from Study
  Country: DE (occurrence: DE)
  Receive Date: 20150626
  Receipt Date: 20150707
  Transmission Date: 20151125
  Serious: Yes (Hospitalization)
  Sender: FDA-Public Use
  Company Number: DE-ROCHE-1596228

PATIENT
  Age: 67 Year
  Sex: Male
  Weight: 101.5 kg

DRUGS (8)
  1. CISPLATIN. [Suspect]
     Active Substance: CISPLATIN
     Indication: HER-2 POSITIVE GASTRIC CANCER
     Route: 042
     Dates: start: 20150610
  2. TRASTUZUMAB [Suspect]
     Active Substance: TRASTUZUMAB
     Dosage: MAINTENANCE DOSE?MOST RECENT DOSE WAS ADMINISTERED ON 25/JUN/2015
     Route: 042
  3. FLUOROURACIL. [Suspect]
     Active Substance: FLUOROURACIL
     Dosage: DAYS 1-5, EVERY THREE WEEKS
     Route: 042
     Dates: start: 20150613, end: 20150613
  4. FLUOROURACIL. [Suspect]
     Active Substance: FLUOROURACIL
     Dosage: DAYS 1-5, EVERY THREE WEEKS
     Route: 042
     Dates: start: 20150614, end: 20150614
  5. TRASTUZUMAB [Suspect]
     Active Substance: TRASTUZUMAB
     Indication: HER-2 POSITIVE GASTRIC CANCER
     Dosage: LOADING DOSE
     Route: 042
     Dates: start: 20150610, end: 20150610
  6. BLINDED PERTUZUMAB [Suspect]
     Active Substance: PERTUZUMAB
     Indication: HER-2 POSITIVE GASTRIC CANCER
     Dosage: LOADING DOSE
     Route: 042
     Dates: start: 20150610, end: 20150610
  7. FLUOROURACIL. [Suspect]
     Active Substance: FLUOROURACIL
     Indication: HER-2 POSITIVE GASTRIC CANCER
     Dosage: DAYS 1-4, EVERY THREE WEEKS
     Route: 042
     Dates: start: 20150611, end: 20150611
  8. FLUOROURACIL. [Suspect]
     Active Substance: FLUOROURACIL
     Dosage: DAYS 1-5, EVERY THREE WEEKS
     Route: 042
     Dates: start: 20150612, end: 20150612

REACTIONS (2)
  - Acute kidney injury [Not Recovered/Not Resolved]
  - Circulatory collapse [Not Recovered/Not Resolved]

NARRATIVE: CASE EVENT DATE: 20150616
